FAERS Safety Report 14860768 (Version 6)
Quarter: 2022Q1

REPORT INFORMATION
  Report Type: Spontaneous
  Country: DK (occurrence: DK)
  Receive Date: 20180508
  Receipt Date: 20220328
  Transmission Date: 20220424
  Serious: Yes (Hospitalization, Disabling, Other)
  Sender: FDA-Public Use
  Company Number: None

PATIENT
  Age: 23 Year
  Sex: Female
  Weight: 67 kg

DRUGS (13)
  1. FLUTICASONE FUROATE [Suspect]
     Active Substance: FLUTICASONE FUROATE
     Indication: Rhinorrhoea
     Dosage: 27.5 UG, QD (STRENGTH: 27.5 MICROGRAM.)
     Route: 045
     Dates: start: 20170111
  2. BUDESONIDE\FORMOTEROL FUMARATE [Suspect]
     Active Substance: BUDESONIDE\FORMOTEROL FUMARATE
     Indication: Asthma
     Dosage: 4 DF, QD (DOSAGE INCREASED FROM 1DF TWICE A DAY TO 2DF TWICE A DAILY ON 13MAR2017STRENGTH: 9+320 ?G/
     Route: 055
     Dates: start: 20161014
  3. ELOCON [Suspect]
     Active Substance: MOMETASONE FUROATE
     Indication: Eczema
     Dosage: 0.1%, AS NECESSARY (STRENGTH: 0.1%.)
     Route: 003
     Dates: start: 2013
  4. BUDESONIDE [Suspect]
     Active Substance: BUDESONIDE
     Indication: Asthma
     Dosage: 1 DF, QD (1 DF MORNING+2 DF EVENING, AND REDUCED TO 1DF A DAY ON UNKNOWN DATE.STRENGTH: 200 ?G/DOSIS
     Route: 055
     Dates: start: 201610
  5. FLUTICASONE [Concomitant]
     Active Substance: FLUTICASONE
     Indication: Rhinorrhoea
     Dosage: 1 DF, QD (STRENGTH: 27.5 MICROGRAMS)
     Route: 045
     Dates: start: 20170111
  6. ROXITHROMYCIN [Concomitant]
     Active Substance: ROXITHROMYCIN
     Indication: Otitis media
     Dosage: 300 MG, QD (STRENGTH: 300 MG.)
     Route: 048
     Dates: start: 20171228, end: 20180226
  7. ETHINYL ESTRADIOL\LEVONORGESTREL [Concomitant]
     Active Substance: ETHINYL ESTRADIOL\LEVONORGESTREL
     Indication: Contraception
     Dosage: 1 DF, QD (STRENGTH: 0.15 + 0.03 MG.)
     Route: 048
     Dates: start: 20170829, end: 201804
  8. FEXOFENADINE [Concomitant]
     Active Substance: FEXOFENADINE HYDROCHLORIDE
     Indication: Seasonal allergy
     Dosage: 120 MG, QD (STRENGTH: 120 MG.)
     Route: 048
     Dates: start: 20160425
  9. MONTELUKAST\MONTELUKAST SODIUM [Concomitant]
     Active Substance: MONTELUKAST\MONTELUKAST SODIUM
     Indication: Asthma
     Dosage: 10 MG, QD (STRENGTH: 10 MG)
     Route: 048
     Dates: start: 20170111, end: 201711
  10. ALBUTEROL SULFATE [Concomitant]
     Active Substance: ALBUTEROL SULFATE
     Indication: Asthma
     Dosage: 200 UG, AS NECESSARY, (STRENGTH: 200 MICROGRAMS / DOSE)
     Route: 055
     Dates: start: 20161014
  11. DESLORATADINE [Concomitant]
     Active Substance: DESLORATADINE
     Indication: Seasonal allergy
     Dosage: 5 MG (STRENGTH: 5 MG.)
     Route: 048
     Dates: start: 20170111
  12. OLOPATADINE [Concomitant]
     Active Substance: OLOPATADINE
     Indication: Eye infection
     Dosage: 2 GTT, QD,(STRENGTH: 1 MG / ML. DOSAGE: IN BOTH EYES.)
     Route: 050
     Dates: start: 20170111
  13. MILDISON LIPID [Concomitant]
     Indication: Rash
     Dosage: UNK UNK, BID (DOSAGE: 1 APPLICATION TWICE DAILY. STRENGTH: 10 MG / G.)
     Route: 003
     Dates: start: 20141006

REACTIONS (17)
  - Adrenal insufficiency [Recovering/Resolving]
  - Blood glucose abnormal [Unknown]
  - Nausea [Unknown]
  - Pruritus [Unknown]
  - Blood pressure abnormal [Unknown]
  - Immune system disorder [Unknown]
  - Arthralgia [Unknown]
  - Abdominal pain [Unknown]
  - Depressed level of consciousness [Unknown]
  - Body temperature fluctuation [Unknown]
  - Loss of personal independence in daily activities [Unknown]
  - Muscular weakness [Unknown]
  - Affective disorder [Unknown]
  - Dyspnoea [Recovering/Resolving]
  - Fatigue [Recovering/Resolving]
  - Dizziness [Unknown]
  - Prescribed overdose [Recovered/Resolved]

NARRATIVE: CASE EVENT DATE: 20170101
